FAERS Safety Report 10583228 (Version 1)
Quarter: 2014Q4

REPORT INFORMATION
  Report Type: Spontaneous
  Country: US (occurrence: US)
  Receive Date: 20141114
  Receipt Date: 20141114
  Transmission Date: 20150529
  Serious: No
  Sender: FDA-Public Use
  Company Number: US-009507513-1411USA005672

PATIENT
  Age: 75 Year
  Sex: Male
  Weight: 87 kg

DRUGS (7)
  1. TIKOSYN [Concomitant]
     Active Substance: DOFETILIDE
     Indication: ATRIAL FLUTTER
     Dosage: 125 MICROGRAM, TWICE DAILY
     Route: 048
     Dates: start: 2009
  2. IMDUR [Concomitant]
     Active Substance: ISOSORBIDE MONONITRATE
     Indication: VASODILATATION
     Dosage: UNK, BID
     Route: 048
  3. TAURINE [Concomitant]
     Active Substance: TAURINE
     Indication: HEART RATE
  4. COZAAR [Suspect]
     Active Substance: LOSARTAN POTASSIUM
     Dosage: DAILY DOSE UNKNOWN
     Route: 048
  5. HAWTHORN [Concomitant]
     Indication: HYPERTENSION
     Dosage: 1 DF, TID
     Route: 048
  6. TAURINE [Concomitant]
     Active Substance: TAURINE
     Indication: BLOOD PRESSURE
     Dosage: 1 DF, BID
     Route: 048
  7. TIKOSYN [Concomitant]
     Active Substance: DOFETILIDE
     Indication: ATRIAL FIBRILLATION

REACTIONS (1)
  - Syncope [Recovered/Resolved]
